FAERS Safety Report 8837144 (Version 1)
Quarter: 2012Q4

REPORT INFORMATION
  Report Type: Spontaneous
  Country: US (occurrence: None)
  Receive Date: 20121011
  Receipt Date: 20121011
  Transmission Date: 20130627
  Serious: Yes (Life-Threatening, Hospitalization, Disabling)
  Sender: FDA-Public Use
  Company Number: None

PATIENT
  Age: 51 Year
  Sex: Male
  Weight: 127.3 kg

DRUGS (2)
  1. VANCOMYCIN [Suspect]
     Indication: CELLULITIS
     Dosage: 2000 mg x12 @60 min Left arm PICC
     Route: 042
     Dates: start: 20110405, end: 201112
  2. ZOSYN [Suspect]

REACTIONS (10)
  - Medication error [None]
  - Overdose [None]
  - Incorrect drug administration rate [None]
  - Red man syndrome [None]
  - Renal impairment [None]
  - Pyrexia [None]
  - Disorientation [None]
  - Pruritus [None]
  - Burning sensation [None]
  - Adverse reaction [None]
